FAERS Safety Report 11162169 (Version 1)
Quarter: 2015Q2

REPORT INFORMATION
  Report Type: Spontaneous
  Country: US (occurrence: None)
  Receive Date: 20150602
  Receipt Date: 20150602
  Transmission Date: 20150821
  Serious: Yes (Other)
  Sender: FDA-Public Use
  Company Number: FK201502470

PATIENT
  Age: 32 Year
  Sex: Female

DRUGS (8)
  1. DAUNORUBICIN (DAUNORUBICIN) (DAUNORUBICIN) [Suspect]
     Active Substance: DAUNORUBICIN
     Indication: ACUTE MYELOID LEUKAEMIA
  2. LEVAQUIN [Concomitant]
     Active Substance: LEVOFLOXACIN
  3. ACYCLOVIR (ACICLOVIR) (ACICLOVIR) [Concomitant]
     Active Substance: ACYCLOVIR
  4. PIPERACILLIN/TAZOBACTAM (PIP/TAZO) [Concomitant]
  5. VANCOMYCIN [Concomitant]
     Active Substance: VANCOMYCIN
  6. CYTARABINE (MANUFACTURER UNKNOWN) (CYTARABINE) (CYTARABINE) [Suspect]
     Active Substance: CYTARABINE
     Indication: ACUTE MYELOID LEUKAEMIA
  7. CEFIPIME (CEFEPIME HYDROCHLORIDE) [Concomitant]
  8. POSACONAZOLE [Concomitant]
     Active Substance: POSACONAZOLE

REACTIONS (2)
  - Neutropenia [None]
  - Pyrexia [None]
